FAERS Safety Report 5326479-9 (Version None)
Quarter: 2007Q2

REPORT INFORMATION
  Report Type: 
  Country: None (occurrence: None)
  Receive Date: 20070516
  Receipt Date: 20070510
  Transmission Date: 20071010
  Serious: Yes (Death, Hospitalization)
  Sender: FDA-Public Use
  Company Number: PHHO2006ZA20452

PATIENT
  Age: 19 Year
  Sex: Female

DRUGS (4)
  1. GLEEVEC [Suspect]
     Indication: CHRONIC MYELOID LEUKAEMIA
     Dosage: 400 MG, QD
     Route: 048
     Dates: start: 20060920, end: 20061120
  2. GLEEVEC [Suspect]
     Dosage: NO TREATMENT
     Dates: start: 20061121, end: 20070306
  3. GLEEVEC [Suspect]
     Dosage: 100 MG, QD
     Route: 048
     Dates: start: 20070307, end: 20070422
  4. CONTRACEPTIVES NOS [Concomitant]

REACTIONS (6)
  - DYSPNOEA [None]
  - HAEMOTHORAX [None]
  - NEUTROPHIL COUNT [None]
  - OEDEMA [None]
  - RESPIRATORY DISTRESS [None]
  - THORACIC CAVITY DRAINAGE [None]
